FAERS Safety Report 24636487 (Version 2)
Quarter: 2024Q4

REPORT INFORMATION
  Report Type: Report from Study
  Country: US (occurrence: US)
  Receive Date: 20241119
  Receipt Date: 20241206
  Transmission Date: 20250114
  Serious: Yes (Hospitalization, Other)
  Sender: JAZZ
  Company Number: US-JAZZ PHARMACEUTICALS-2024-US-019148

PATIENT
  Sex: Female
  Weight: 79.6 kg

DRUGS (8)
  1. EPIDIOLEX [Suspect]
     Active Substance: CANNABIDIOL
     Indication: Epilepsy
     Dosage: 5.5 MILLILITER, BID
     Route: 048
     Dates: start: 202006
  2. EPIDIOLEX [Suspect]
     Active Substance: CANNABIDIOL
     Indication: Partial seizures
     Dosage: 5.5 MILLILITER BY MOUTH ONCE EVERY MORNING AND 4.5 MILLILITER  ONCE EVERY NIGHT AT BED TIME
     Route: 048
  3. ZONEGRAN [Suspect]
     Active Substance: ZONISAMIDE
     Indication: Seizure
     Dosage: 50 MILLIGRAM, QD
     Route: 048
     Dates: start: 20240903, end: 20240904
  4. DIAZEPAM [Concomitant]
     Active Substance: DIAZEPAM
     Indication: Seizure
     Dosage: 15 MILLIGRAM INTRANASALLY ONCE GIVEN AS ONE SPRAY (7.5MG) IN EACH NOSTRIL, THEN MAY REPEAT ONCE AFTE
  5. SPRITAM [Concomitant]
     Active Substance: LEVETIRACETAM
     Dosage: 500 MILLIGRAM, TABLET
  6. SPRITAM [Concomitant]
     Active Substance: LEVETIRACETAM
     Dosage: 1000 MILLIGRAM, TABLET
  7. SYMPAZAN [Concomitant]
     Active Substance: CLOBAZAM
     Dosage: 20 MILLIGRAM, BID
     Route: 048
  8. POLYTRIM [Concomitant]
     Active Substance: POLYMYXIN B SULFATE\TRIMETHOPRIM SULFATE
     Indication: Product used for unknown indication
     Dosage: BOTH EYES, Q6H

REACTIONS (2)
  - Seizure like phenomena [Recovered/Resolved]
  - Drug hypersensitivity [Unknown]
